FAERS Safety Report 9190859 (Version 1)
Quarter: 2013Q1

REPORT INFORMATION
  Report Type: Report from Study
  Country: JP (occurrence: JP)
  Receive Date: 20130326
  Receipt Date: 20130326
  Transmission Date: 20140127
  Serious: Yes (Life-Threatening, Disabling)
  Sender: FDA-Public Use
  Company Number: JP-GLAXOSMITHKLINE-B0643556A

PATIENT
  Age: 16 Year
  Sex: Male
  Weight: 55 kg

DRUGS (29)
  1. ARRANON [Suspect]
     Indication: T-CELL TYPE ACUTE LEUKAEMIA
     Dosage: 1500MGM2 PER DAY
     Route: 042
     Dates: start: 20090309, end: 20090309
  2. ARRANON [Suspect]
     Indication: T-CELL TYPE ACUTE LEUKAEMIA
     Dosage: 650MGM2 PER DAY
     Route: 042
     Dates: start: 20090331, end: 20090331
  3. ARRANON [Suspect]
     Indication: T-CELL TYPE ACUTE LEUKAEMIA
     Dosage: 650MGM2 PER DAY
     Route: 042
     Dates: start: 20090508, end: 20090508
  4. ARRANON [Suspect]
     Indication: T-CELL TYPE ACUTE LEUKAEMIA
     Dosage: 650MGM2 PER DAY
     Route: 042
     Dates: start: 20090619, end: 20090619
  5. PROGRAF [Suspect]
     Dates: start: 20090628, end: 20090711
  6. ONCOVIN [Concomitant]
     Indication: NEOPLASM MALIGNANT
     Dates: start: 20090217, end: 20090303
  7. DAUNOMYCIN [Concomitant]
     Indication: NEOPLASM MALIGNANT
     Dates: start: 20090220, end: 20090222
  8. ENDOXAN [Concomitant]
     Indication: NEOPLASM MALIGNANT
     Dates: start: 20090219, end: 20090219
  9. ENDOXAN [Concomitant]
     Indication: NEOPLASM MALIGNANT
     Dates: start: 20090330, end: 20090403
  10. ENDOXAN [Concomitant]
     Indication: NEOPLASM MALIGNANT
     Dates: start: 20090430, end: 20090504
  11. LEUNASE [Concomitant]
     Indication: NEOPLASM MALIGNANT
     Dates: start: 20090224, end: 20090301
  12. VEPESID [Concomitant]
     Indication: NEOPLASM MALIGNANT
     Dates: start: 20090330, end: 20090403
  13. VEPESID [Concomitant]
     Indication: NEOPLASM MALIGNANT
     Dates: start: 20090430, end: 20090504
  14. CEFAMEZIN [Concomitant]
     Dates: start: 20090309, end: 20090313
  15. FENTANYL [Concomitant]
     Dates: start: 20090309, end: 20090313
  16. ZOSYN [Concomitant]
     Dates: start: 20090415, end: 20090418
  17. PANTOL [Concomitant]
     Dates: start: 20090417, end: 20090420
  18. FRAGMIN [Concomitant]
     Dates: start: 20090619, end: 20090628
  19. BAKTAR [Concomitant]
     Route: 048
     Dates: start: 20090309, end: 20090617
  20. ZYLORIC [Concomitant]
     Route: 048
     Dates: start: 20090309, end: 20090617
  21. EVAMYL [Concomitant]
     Route: 048
     Dates: start: 20090309, end: 20090623
  22. KYTRIL [Concomitant]
     Route: 042
     Dates: start: 20090309, end: 20090313
  23. KYTRIL [Concomitant]
     Route: 042
     Dates: start: 20090331, end: 20090404
  24. KYTRIL [Concomitant]
     Route: 042
     Dates: start: 20090508, end: 20090512
  25. KYTRIL [Concomitant]
     Route: 042
     Dates: start: 20090619, end: 20090623
  26. NEUTROGIN [Concomitant]
     Dates: start: 20090406, end: 20090420
  27. NEUTROGIN [Concomitant]
     Dates: start: 20090521, end: 20090525
  28. ATARAX [Concomitant]
     Dates: start: 20090331, end: 20090414
  29. ATARAX [Concomitant]
     Dates: start: 20090512, end: 20090518

REACTIONS (5)
  - Acute respiratory distress syndrome [Recovered/Resolved]
  - Cystitis viral [Recovered/Resolved]
  - Hypoaesthesia [Recovering/Resolving]
  - Anal fissure [Recovered/Resolved]
  - Renal disorder [Recovered/Resolved]
